FAERS Safety Report 20008794 (Version 1)
Quarter: 2021Q4

REPORT INFORMATION
  Report Type: Spontaneous
  Country: US (occurrence: US)
  Receive Date: 20211028
  Receipt Date: 20211028
  Transmission Date: 20220303
  Serious: No
  Sender: FDA-Public Use
  Company Number: US-PFIZER INC-202101126738

PATIENT
  Age: 75 Year
  Sex: Female
  Weight: 49.89 kg

DRUGS (13)
  1. IBRANCE [Suspect]
     Active Substance: PALBOCICLIB
     Indication: Breast neoplasm
     Dosage: 100 MG, CYCLIC, FOR 21 DAYS THEN REST FOR 7 DAYS AND REPEAT
     Route: 048
     Dates: start: 20210802
  2. IBRANCE [Suspect]
     Active Substance: PALBOCICLIB
     Indication: Breast cancer female
  3. PROLIA [Concomitant]
     Active Substance: DENOSUMAB
     Dosage: UNK
  4. AMLODIPINE BESYLATE [Concomitant]
     Active Substance: AMLODIPINE BESYLATE
     Dosage: 10 MG
  5. ASPIRIN [Concomitant]
     Active Substance: ASPIRIN
     Dosage: 325 MG
  6. BIOTIN [Concomitant]
     Active Substance: BIOTIN
     Dosage: 2500 MC
  7. CALCIUM CARBONATE\CHOLECALCIFEROL [Concomitant]
     Active Substance: CALCIUM CARBONATE\CHOLECALCIFEROL
     Dosage: 200MG-5
  8. CLOPIDOGREL [Concomitant]
     Active Substance: CLOPIDOGREL BISULFATE
     Dosage: 300 MG
  9. LETROZOLE [Concomitant]
     Active Substance: LETROZOLE
     Dosage: 2.5 MG
  10. VITAMINS [Concomitant]
     Active Substance: VITAMINS
     Dosage: UNK
  11. QUINAPRIL [Concomitant]
     Active Substance: QUINAPRIL
     Dosage: 10 MG
  12. ROSUVASTATIN CALCIUM [Concomitant]
     Active Substance: ROSUVASTATIN CALCIUM
     Dosage: 10 MG
  13. SYNTHROID [Concomitant]
     Active Substance: LEVOTHYROXINE SODIUM
     Dosage: 50 UG

REACTIONS (4)
  - Contusion [Unknown]
  - Feeling cold [Unknown]
  - Haemoglobin decreased [Unknown]
  - Breast mass [Unknown]

NARRATIVE: CASE EVENT DATE: 20210101
